FAERS Safety Report 26168721 (Version 1)
Quarter: 2025Q4

REPORT INFORMATION
  Report Type: Spontaneous
  Country: US (occurrence: US)
  Receive Date: 20251217
  Receipt Date: 20251217
  Transmission Date: 20260118
  Serious: No
  Sender: PACIRA
  Company Number: US-ORG100016242-2025000165

PATIENT
  Sex: Male

DRUGS (2)
  1. EXPAREL [Suspect]
     Active Substance: BUPIVACAINE
     Indication: Rotator cuff repair
     Route: 065
     Dates: start: 20250428, end: 20250428
  2. BUPIVACAINE [Suspect]
     Active Substance: BUPIVACAINE
     Indication: Rotator cuff repair
     Route: 065
     Dates: start: 20250428, end: 20250428

REACTIONS (3)
  - Therapeutic product effect prolonged [Not Recovered/Not Resolved]
  - Hypoaesthesia [Not Recovered/Not Resolved]
  - Muscular weakness [Not Recovered/Not Resolved]

NARRATIVE: CASE EVENT DATE: 20250428
